FAERS Safety Report 5599462-6 (Version None)
Quarter: 2007Q4

REPORT INFORMATION
  Report Type: 
  Country: None (occurrence: None)
  Receive Date: 20071226
  Receipt Date: 20061127
  Transmission Date: 20080405
  Serious: Yes (Disabling)
  Sender: FDA-Public Use
  Company Number: 009253

PATIENT
  Age: 54 Year
  Sex: Female
  Weight: 49.9 kg

DRUGS (3)
  1. ETHAMBUTOL HYDROCHLORIDE [Suspect]
     Indication: TUBERCULOSIS
     Dosage: 2500 MG, QD, ORAL
     Route: 048
     Dates: start: 20060301, end: 20061101
  2. RIFAMPIN (RIFAMPCIN) [Concomitant]
  3. AZITHROMYCIN [Concomitant]

REACTIONS (1)
  - BLINDNESS [None]
